FAERS Safety Report 23726673 (Version 2)
Quarter: 2024Q2

REPORT INFORMATION
  Report Type: Report from Study
  Country: CO (occurrence: CO)
  Receive Date: 20240410
  Receipt Date: 20240515
  Transmission Date: 20240715
  Serious: Yes (Death, Hospitalization, Other)
  Sender: FDA-Public Use
  Company Number: CO-BAYER-2024A019175

PATIENT
  Age: 83 Year
  Sex: Male

DRUGS (8)
  1. ADEMPAS [Suspect]
     Active Substance: RIOCIGUAT
     Indication: Pulmonary arterial hypertension
     Dosage: UNK
  2. ADEMPAS [Suspect]
     Active Substance: RIOCIGUAT
     Indication: Pulmonary arterial hypertension
     Dosage: 1 MG, Q8HR
     Dates: start: 20230705
  3. XARELTO [Suspect]
     Active Substance: RIVAROXABAN
     Indication: Haemorrhage
     Dosage: 20 MG, QD
     Route: 048
     Dates: start: 2015
  4. XARELTO [Suspect]
     Active Substance: RIVAROXABAN
     Indication: Pain
  5. XARELTO [Suspect]
     Active Substance: RIVAROXABAN
     Indication: Pulmonary embolism
  6. FUROSEMIDE [Concomitant]
     Active Substance: FUROSEMIDE
     Dosage: UNK
  7. VALSARTAN [Concomitant]
     Active Substance: VALSARTAN
     Indication: Hypertension
     Dosage: UNK
  8. CARVEDILOL [Concomitant]
     Active Substance: CARVEDILOL
     Dosage: UNK

REACTIONS (12)
  - Rectal haemorrhage [Fatal]
  - Abdominal distension [Fatal]
  - Oxygen therapy [None]
  - Inguinal hernia [Not Recovered/Not Resolved]
  - Post procedural haematuria [Not Recovered/Not Resolved]
  - Haemorrhage urinary tract [None]
  - Anal haemorrhage [Not Recovered/Not Resolved]
  - Procedural pain [Not Recovered/Not Resolved]
  - Off label use [None]
  - Contraindicated product administered [None]
  - Fluid retention [Recovered/Resolved]
  - Oedema peripheral [Recovered/Resolved]

NARRATIVE: CASE EVENT DATE: 20230901
